FAERS Safety Report 11655366 (Version 2)
Quarter: 2015Q4

REPORT INFORMATION
  Report Type: Spontaneous
  Country: SE (occurrence: SE)
  Receive Date: 20151023
  Receipt Date: 20151119
  Transmission Date: 20160304
  Serious: Yes (Hospitalization)
  Sender: FDA-Public Use
  Company Number: SE-CELGENE-SWE-2015102383

PATIENT
  Age: 57 Year
  Sex: Female

DRUGS (24)
  1. HYDROCHLOROTHIAZIDE EVOLAN [Concomitant]
     Dosage: 1000 MILLIGRAM
     Route: 048
  2. VALDOXAN [Concomitant]
     Active Substance: AGOMELATINE
     Indication: SLEEP DISORDER
  3. INSUMAN [Concomitant]
     Active Substance: INSULIN HUMAN
     Indication: DIABETES MELLITUS
     Dosage: UNITS/ML
     Route: 058
     Dates: start: 20130618
  4. FERINJECT [Concomitant]
     Active Substance: FERRIC CARBOXYMALTOSE
     Indication: PRODUCT USED FOR UNKNOWN INDICATION
     Dosage: MIX WITH 250 ML SODIUM CHLORIDE 9 ML/ML PRIOR TO ADMINISTRATION.
     Route: 041
  5. PEVARYL [Concomitant]
     Active Substance: ECONAZOLE NITRATE
     Indication: CANDIDA INFECTION
     Route: 061
     Dates: start: 20150908
  6. PREDNISOLONE. [Concomitant]
     Active Substance: PREDNISOLONE
     Indication: STEROID THERAPY
     Dosage: 1000 MILLIGRAM
     Route: 065
     Dates: start: 20140611
  7. VALDOXAN [Concomitant]
     Active Substance: AGOMELATINE
     Indication: DEPRESSION
     Route: 048
     Dates: start: 20091208
  8. OMEPRAZOLE. [Concomitant]
     Active Substance: OMEPRAZOLE
     Indication: GASTROINTESTINAL DISORDER
     Route: 048
     Dates: start: 20130206
  9. CALCICHEW [Concomitant]
     Active Substance: CALCIUM CARBONATE
     Indication: PRODUCT USED FOR UNKNOWN INDICATION
     Dosage: UNITS/ML
     Route: 048
     Dates: start: 20130209
  10. HYDROCHLOROTHIAZIDE EVOLAN [Concomitant]
     Indication: HYPERTENSION
     Dosage: MIX WITH 250 ML SODIUM CHLORIDE 9 ML/ML PRIOR TO ADMINISTRATION.
     Route: 048
     Dates: start: 20130618
  11. PREDNISOLONE. [Concomitant]
     Active Substance: PREDNISOLONE
     Indication: POLYMYALGIA RHEUMATICA
     Route: 065
     Dates: start: 20140110
  12. TRAMADOL. [Concomitant]
     Active Substance: TRAMADOL
     Indication: PSORIASIS
     Route: 048
     Dates: start: 20130328
  13. ENALAPRIL KRKA [Concomitant]
     Indication: HYPERTENSION
     Route: 048
     Dates: start: 20130618
  14. NAPROXEN. [Concomitant]
     Active Substance: NAPROXEN
     Indication: PRODUCT USED FOR UNKNOWN INDICATION
     Route: 048
     Dates: start: 20130206
  15. OTEZLA [Suspect]
     Active Substance: APREMILAST
     Route: 048
     Dates: start: 20151104
  16. OTEZLA [Suspect]
     Active Substance: APREMILAST
     Indication: RHEUMATIC DISORDER
     Route: 048
     Dates: start: 20150820, end: 20150903
  17. DUROFERON [Concomitant]
     Active Substance: FERROUS SULFATE\FERROUS SULFATE, DRIED
     Indication: IRON DEFICIENCY
     Dosage: UNITS/ML
     Route: 048
     Dates: start: 20150624
  18. FERINJECT [Concomitant]
     Active Substance: FERRIC CARBOXYMALTOSE
     Dosage: 300 IU (INTERNATIONAL UNIT)
     Route: 048
  19. ENALAPRIL KRKA [Concomitant]
     Route: 048
  20. PEVARYL [Concomitant]
     Active Substance: ECONAZOLE NITRATE
     Route: 048
  21. CYMBALTA [Concomitant]
     Active Substance: DULOXETINE HYDROCHLORIDE
     Indication: DEPRESSION
     Route: 048
     Dates: start: 20140110
  22. DAIVOBET [Concomitant]
     Active Substance: BETAMETHASONE DIPROPIONATE\CALCIPOTRIENE
     Indication: PSORIASIS
     Route: 065
     Dates: start: 20110502
  23. APIDRA [Concomitant]
     Active Substance: INSULIN GLULISINE
     Indication: DIABETES MELLITUS
     Dosage: UNITS/ML
     Route: 058
     Dates: start: 20130618
  24. DUROFERON [Concomitant]
     Active Substance: FERROUS SULFATE\FERROUS SULFATE, DRIED
     Route: 048

REACTIONS (3)
  - Nausea [Unknown]
  - Erysipelas [Recovered/Resolved]
  - Diarrhoea [Unknown]

NARRATIVE: CASE EVENT DATE: 201508
